FAERS Safety Report 23761425 (Version 1)
Quarter: 2024Q2

REPORT INFORMATION
  Report Type: Spontaneous
  Country: CN (occurrence: None)
  Receive Date: 20240419
  Receipt Date: 20240419
  Transmission Date: 20240716
  Serious: Yes (Other)
  Sender: FDA-Public Use
  Company Number: CN-ROCHE-3546010

PATIENT
  Sex: Female
  Weight: 55 kg

DRUGS (2)
  1. KADCYLA [Suspect]
     Active Substance: ADO-TRASTUZUMAB EMTANSINE
     Indication: Breast cancer
     Route: 041
     Dates: start: 20240312, end: 20240312
  2. HERCEPTIN [Suspect]
     Active Substance: TRASTUZUMAB
     Indication: Breast cancer
     Route: 065

REACTIONS (3)
  - Platelet count decreased [Recovering/Resolving]
  - Transaminases increased [Recovering/Resolving]
  - Breast cancer metastatic [Unknown]

NARRATIVE: CASE EVENT DATE: 20240318
